FAERS Safety Report 10786555 (Version 3)
Quarter: 2015Q1

REPORT INFORMATION
  Report Type: Report from Study
  Country: DE (occurrence: DE)
  Receive Date: 20150211
  Receipt Date: 20150302
  Transmission Date: 20150721
  Serious: Yes (Death)
  Sender: FDA-Public Use
  Company Number: DE-PFIZER INC-2015049787

PATIENT
  Age: 58 Year
  Sex: Male
  Weight: 72 kg

DRUGS (1)
  1. INLYTA [Suspect]
     Active Substance: AXITINIB
     Dosage: 10 MG, DAILY
     Dates: start: 20141126

REACTIONS (1)
  - Death [Fatal]

NARRATIVE: CASE EVENT DATE: 20150116
